FAERS Safety Report 14943812 (Version 3)
Quarter: 2018Q3

REPORT INFORMATION
  Report Type: Report from Study
  Country: US (occurrence: US)
  Receive Date: 20180528
  Receipt Date: 20180828
  Transmission Date: 20181010
  Serious: Yes (Other)
  Sender: FDA-Public Use
  Company Number: US-AMGEN-USASL2018070731

PATIENT
  Age: 86 Year
  Sex: Female

DRUGS (1)
  1. REPATHA [Suspect]
     Active Substance: EVOLOCUMAB
     Indication: HYPERCHOLESTEROLAEMIA
     Dosage: 140 MG, Q2WK
     Route: 058
     Dates: start: 201705

REACTIONS (5)
  - Pelvic fracture [Unknown]
  - Fall [Unknown]
  - Bronchitis [Recovering/Resolving]
  - Contusion [Unknown]
  - Breast mass [Unknown]

NARRATIVE: CASE EVENT DATE: 2018
